FAERS Safety Report 25393549 (Version 1)
Quarter: 2025Q2

REPORT INFORMATION
  Report Type: Spontaneous
  Country: US (occurrence: US)
  Receive Date: 20250604
  Receipt Date: 20250604
  Transmission Date: 20250716
  Serious: Yes (Hospitalization)
  Sender: KARYOPHARM THERAPEUTICS
  Company Number: US-KARYOPHARM-2025KPT100330

PATIENT

DRUGS (16)
  1. SELINEXOR [Suspect]
     Active Substance: SELINEXOR
     Indication: Plasma cell myeloma
     Route: 048
     Dates: start: 20250414, end: 2025
  2. ACYCLOVIR [Concomitant]
     Active Substance: ACYCLOVIR
  3. PROVENTIL [Concomitant]
     Active Substance: ALBUTEROL
  4. ELIQUIS [Concomitant]
     Active Substance: APIXABAN
  5. ATORVASTATIN [Concomitant]
     Active Substance: ATORVASTATIN
  6. CLOPIDOGREL BISULFATE [Concomitant]
     Active Substance: CLOPIDOGREL BISULFATE
  7. DEXAMETHASONE [Concomitant]
     Active Substance: DEXAMETHASONE
  8. FLOVENT HFA [Concomitant]
     Active Substance: FLUTICASONE PROPIONATE
  9. INSULIN GLARGINE [Concomitant]
     Active Substance: INSULIN GLARGINE
  10. INSULIN LISPRO [Concomitant]
     Active Substance: INSULIN LISPRO
  11. LATANOPROST [Concomitant]
     Active Substance: LATANOPROST
  12. NITROSTAT [Concomitant]
     Active Substance: NITROGLYCERIN
  13. ONDANSETRON [Concomitant]
     Active Substance: ONDANSETRON
  14. SPIRONOLACTONE [Concomitant]
     Active Substance: SPIRONOLACTONE
  15. CARVYKTI [Concomitant]
     Active Substance: CILTACABTAGENE AUTOLEUCEL
  16. SPIRIVA [Concomitant]
     Active Substance: TIOTROPIUM BROMIDE MONOHYDRATE

REACTIONS (1)
  - Ill-defined disorder [Unknown]

NARRATIVE: CASE EVENT DATE: 20250101
